FAERS Safety Report 7581944-9 (Version None)
Quarter: 2011Q2

REPORT INFORMATION
  Report Type: 
  Country: None (occurrence: None)
  Receive Date: 20110629
  Receipt Date: 20110625
  Transmission Date: 20111010
  Serious: Yes (Hospitalization)
  Sender: FDA-Public Use
  Company Number: US-BRISTOL-MYERS SQUIBB COMPANY-15856321

PATIENT
  Age: 72 Year
  Sex: Male
  Weight: 81 kg

DRUGS (2)
  1. IPILIMUMAB [Suspect]
     Indication: MALIGNANT MELANOMA
     Dosage: LAST ADMINISTRATION: 15-JUN-2011
     Route: 042
     Dates: start: 20110427
  2. ROCEPHIN [Concomitant]

REACTIONS (1)
  - NEUTROPHIL COUNT DECREASED [None]
